FAERS Safety Report 5365806-3 (Version None)
Quarter: 2007Q2

REPORT INFORMATION
  Report Type: 
  Country: None (occurrence: None)
  Receive Date: 20070611
  Receipt Date: 20070131
  Transmission Date: 20071010
  Serious: Yes (Death)
  Sender: FDA-Public Use
  Company Number: USA-2007-0026372

PATIENT
  Age: 33 Year
  Sex: Male
  Weight: 88.4 kg

DRUGS (3)
  1. OXYCONTIN [Suspect]
     Indication: DRUG ABUSER
  2. CARBAMAZEPINE [Suspect]
     Indication: DRUG USE FOR UNKNOWN INDICATION
  3. DIAZEPAM [Suspect]
     Indication: DRUG USE FOR UNKNOWN INDICATION

REACTIONS (3)
  - DRUG ABUSER [None]
  - MULTIPLE DRUG OVERDOSE ACCIDENTAL [None]
  - PULMONARY CONGESTION [None]
